FAERS Safety Report 6535983-7 (Version None)
Quarter: 2010Q1

REPORT INFORMATION
  Report Type: 
  Country: None (occurrence: None)
  Receive Date: 20100113
  Receipt Date: 20100107
  Transmission Date: 20100710
  Serious: Yes (Hospitalization)
  Sender: FDA-Public Use
  Company Number: B0624816A

PATIENT
  Age: 44 Year
  Sex: Female

DRUGS (2)
  1. TYKERB [Suspect]
     Indication: BREAST CANCER
     Route: 048
     Dates: start: 20091210, end: 20091201
  2. XELODA [Concomitant]
     Route: 048
     Dates: start: 20091210, end: 20091201

REACTIONS (1)
  - PYREXIA [None]
